FAERS Safety Report 4302203-3 (Version None)
Quarter: 2004Q1

REPORT INFORMATION
  Report Type: 
  Country: None (occurrence: None)
  Receive Date: 20040126
  Receipt Date: 20031008
  Transmission Date: 20041129
  Serious: No
  Sender: FDA-Public Use
  Company Number: USA031049368

PATIENT
  Age: 7 Year
  Sex: Male
  Weight: 23 kg

DRUGS (2)
  1. STRATTERA [Suspect]
     Indication: ATTENTION DEFICIT/HYPERACTIVITY DISORDER
     Dates: start: 20030601
  2. CELEXA [Concomitant]

REACTIONS (8)
  - ANXIETY [None]
  - DRUG INTERACTION [None]
  - DYSPEPSIA [None]
  - FEAR [None]
  - HYPERHIDROSIS [None]
  - PANIC ATTACK [None]
  - PSYCHIATRIC SYMPTOM [None]
  - RESPIRATORY RATE INCREASED [None]
